FAERS Safety Report 8197712-3 (Version None)
Quarter: 2012Q1

REPORT INFORMATION
  Report Type: 
  Country: None (occurrence: None)
  Receive Date: 20120309
  Receipt Date: 20120306
  Transmission Date: 20120608
  Serious: No
  Sender: FDA-Public Use
  Company Number: US-PFIZER INC-2012040428

PATIENT
  Sex: Female
  Weight: 102 kg

DRUGS (1)
  1. DEPO-MEDROL [Suspect]
     Indication: PAIN
     Dosage: UNK
     Dates: start: 20111109, end: 20111109

REACTIONS (1)
  - SKIN DISCOLOURATION [None]
